FAERS Safety Report 5794606-5 (Version None)
Quarter: 2008Q2

REPORT INFORMATION
  Report Type: 
  Country: None (occurrence: None)
  Receive Date: 20080627
  Receipt Date: 20080627
  Transmission Date: 20081010
  Serious: Yes (Hospitalization)
  Sender: FDA-Public Use
  Company Number: None

PATIENT
  Sex: Female
  Weight: 74.8435 kg

DRUGS (6)
  1. COUMADIN [Suspect]
     Indication: ANTICOAGULANT THERAPY
     Dosage: 7.5 MG PO DAILY  PRIOR TO ADMISSION
     Route: 048
  2. MEDROL [Suspect]
     Indication: ARTHROPOD BITE
     Dosage: TAPER PRIOR TO ADMISSION
  3. HYDROCHLOROTHIAZIDE [Concomitant]
  4. CARTIA XT [Concomitant]
  5. ALLEGRA [Concomitant]
  6. METHYLPREDNISOLONE [Concomitant]

REACTIONS (3)
  - GASTROINTESTINAL HAEMORRHAGE [None]
  - RECTAL HAEMORRHAGE [None]
  - RENAL FAILURE [None]
